APPROVED DRUG PRODUCT: CHILDREN'S FEXOFENADINE HYDROCHLORIDE HIVES
Active Ingredient: FEXOFENADINE HYDROCHLORIDE
Strength: 30MG
Dosage Form/Route: TABLET;ORAL
Application: A076447 | Product #005
Applicant: TEVA PHARMACEUTICALS USA INC
Approved: Apr 13, 2011 | RLD: No | RS: No | Type: OTC